FAERS Safety Report 24695461 (Version 1)
Quarter: 2024Q4

REPORT INFORMATION
  Report Type: Spontaneous
  Country: CN (occurrence: CN)
  Receive Date: 20241204
  Receipt Date: 20241204
  Transmission Date: 20250115
  Serious: Yes (Other)
  Sender: STRIDES
  Company Number: CN-STRIDES ARCOLAB LIMITED-2024SP015975

PATIENT
  Age: 47 Year
  Sex: Female

DRUGS (21)
  1. METHOTREXATE [Suspect]
     Active Substance: METHOTREXATE
     Indication: B-cell type acute leukaemia
     Dosage: UNK
     Route: 065
  2. CYCLOPHOSPHAMIDE [Suspect]
     Active Substance: CYCLOPHOSPHAMIDE
     Indication: B-cell type acute leukaemia
     Dosage: UNK (CIVP REGIMEN)
     Route: 065
  3. IDARUBICIN [Suspect]
     Active Substance: IDARUBICIN
     Indication: B-cell type acute leukaemia
     Dosage: UNK (CIVP REGIMEN)
     Route: 065
  4. VINCRISTINE [Suspect]
     Active Substance: VINCRISTINE
     Indication: B-cell type acute leukaemia
     Dosage: UNK (CIVP REGIMEN)
     Route: 065
  5. DEXAMETHASONE [Suspect]
     Active Substance: DEXAMETHASONE
     Indication: B-cell type acute leukaemia
     Dosage: UNK (CIVP REGIMEN)
     Route: 065
  6. CYTARABINE [Suspect]
     Active Substance: CYTARABINE
     Indication: B-cell type acute leukaemia
     Dosage: UNK (CAG REGIMEN)
     Route: 065
  7. CYTARABINE [Suspect]
     Active Substance: CYTARABINE
     Dosage: UNK (WITH METHOTREXATE AND PEG-ASPARAGINASE)
     Route: 065
  8. ACLARUBICIN [Suspect]
     Active Substance: ACLARUBICIN
     Indication: B-cell type acute leukaemia
     Dosage: UNK (CAG REGIMEN)
     Route: 065
  9. ACLARUBICIN [Suspect]
     Active Substance: ACLARUBICIN
     Dosage: UNK (CAG REGIMEN)
     Route: 065
     Dates: start: 20181213
  10. PEG/L-ASPARAGINASE [Suspect]
     Active Substance: PEGASPARGASE
     Indication: B-cell type acute leukaemia
     Dosage: UNK
     Route: 065
  11. DECITABINE [Suspect]
     Active Substance: DECITABINE
     Indication: Acute myeloid leukaemia
     Dosage: UNK
     Route: 065
     Dates: start: 20180830
  12. OMACETAXINE MEPESUCCINATE [Suspect]
     Active Substance: OMACETAXINE MEPESUCCINATE
     Indication: Acute myeloid leukaemia
     Dosage: UNK
     Route: 065
     Dates: start: 20180830
  13. AZACITIDINE [Suspect]
     Active Substance: AZACITIDINE
     Indication: Acute myeloid leukaemia
     Dosage: UNK (RECEIVED 2 COURSES)
     Route: 065
     Dates: start: 20181122
  14. AZACITIDINE [Suspect]
     Active Substance: AZACITIDINE
     Dosage: 75 MILLIGRAM/SQ. METER (RECEIVED ON?DAY 1?7/EVERY 3 MONTH)
     Route: 065
     Dates: start: 201906
  15. AZACITIDINE [Suspect]
     Active Substance: AZACITIDINE
     Dosage: 75 MILLIGRAM/SQ. METER (RECEIVED ON DAY 1-7)
     Route: 065
     Dates: start: 20210723
  16. LENALIDOMIDE [Suspect]
     Active Substance: LENALIDOMIDE
     Indication: Acute myeloid leukaemia
     Dosage: UNK (RECEIVED 2 COURSES)
     Route: 065
     Dates: start: 20181122
  17. VENETOCLAX [Suspect]
     Active Substance: VENETOCLAX
     Indication: Acute myeloid leukaemia
     Dosage: 100 MILLIGRAM, QD
     Route: 065
     Dates: start: 20190107
  18. VENETOCLAX [Suspect]
     Active Substance: VENETOCLAX
     Dosage: 400 MILLIGRAM, QD (DOSE INCREASED)
     Route: 065
     Dates: start: 2019
  19. VENETOCLAX [Suspect]
     Active Substance: VENETOCLAX
     Dosage: 400 MILLIGRAM, QD (RECEIVED ON DAY 1?21/EVERY MONTH)
     Route: 065
     Dates: start: 201906
  20. VENETOCLAX [Suspect]
     Active Substance: VENETOCLAX
     Dosage: RECEIVED DAY 1-14
     Route: 065
     Dates: start: 20210723
  21. PALBOCICLIB [Suspect]
     Active Substance: PALBOCICLIB
     Indication: Acute myeloid leukaemia
     Dosage: 100 MILLIGRAM, QD (RECEIVED ON DAY 1-15)
     Route: 065
     Dates: start: 20210723

REACTIONS (2)
  - Acute myeloid leukaemia [Recovered/Resolved]
  - Pneumonia [Unknown]

NARRATIVE: CASE EVENT DATE: 20180801
